FAERS Safety Report 8922892 (Version 1)
Quarter: 2012Q4

REPORT INFORMATION
  Report Type: 
  Country: GB (occurrence: GB)
  Receive Date: 20121125
  Receipt Date: 20121125
  Transmission Date: 20130627
  Serious: Yes (Life-Threatening)
  Sender: FDA-Public Use
  Company Number: GB-SANOFI-AVENTIS-2012SA083515

PATIENT
  Age: 82 Year
  Sex: Female
  Weight: 60 kg

DRUGS (13)
  1. LEFLUNOMIDE [Suspect]
     Indication: DRUG USE FOR UNKNOWN INDICATION
     Route: 065
     Dates: start: 20121017
  2. LEVOTHYROXINE [Concomitant]
     Dates: start: 20120705, end: 20120803
  3. LEVOTHYROXINE [Concomitant]
     Dates: start: 20120814
  4. LANSOPRAZOLE [Concomitant]
     Dates: start: 20120706, end: 20120803
  5. LANSOPRAZOLE [Concomitant]
     Dates: start: 20120824, end: 20121023
  6. PREDNISOLONE [Concomitant]
     Dates: start: 20120801, end: 20120829
  7. PREDNISOLONE [Concomitant]
     Dates: start: 20120906, end: 20121004
  8. PARACETAMOL [Concomitant]
     Dates: start: 20120801
  9. SALAMOL /UNK/ [Concomitant]
     Dates: start: 20120828, end: 20120925
  10. CLARITHROMYCIN [Concomitant]
     Dates: start: 20120906, end: 20120913
  11. FLUARIX [Concomitant]
     Dates: start: 20121006, end: 20121007
  12. ALENDRONIC ACID [Concomitant]
     Dates: start: 20121024
  13. ADCAL [Concomitant]
     Dates: start: 20121024

REACTIONS (2)
  - Jaundice [Recovering/Resolving]
  - Diarrhoea [Unknown]
